FAERS Safety Report 11930322 (Version 2)
Quarter: 2016Q1

REPORT INFORMATION
  Report Type: Spontaneous
  Country: US (occurrence: US)
  Receive Date: 20160120
  Receipt Date: 20160314
  Transmission Date: 20160526
  Serious: Yes (Other)
  Sender: FDA-Public Use
  Company Number: US-PFIZER INC-2016023684

PATIENT
  Age: 58 Year
  Sex: Female
  Weight: 100 kg

DRUGS (7)
  1. LIPITOR [Suspect]
     Active Substance: ATORVASTATIN CALCIUM
     Indication: HYPERTENSION
     Dosage: UNK, AS DIRECTED
     Route: 048
     Dates: start: 2012
  2. LIPITOR [Suspect]
     Active Substance: ATORVASTATIN CALCIUM
     Indication: BLOOD GLUCOSE INCREASED
  3. LOVASTATIN. [Concomitant]
     Active Substance: LOVASTATIN
     Indication: CORONARY ARTERY DISEASE
  4. LEVOTHYROXINE. [Concomitant]
     Active Substance: LEVOTHYROXINE
     Indication: THYROID DISORDER
     Dosage: UNK
     Dates: start: 2014
  5. ATORVASTATIN CALCIUM. [Suspect]
     Active Substance: ATORVASTATIN CALCIUM
     Indication: HYPERTENSION
     Dosage: UNK, AS DIRECTED
     Route: 048
     Dates: start: 2012
  6. ATORVASTATIN CALCIUM. [Suspect]
     Active Substance: ATORVASTATIN CALCIUM
     Indication: BLOOD GLUCOSE INCREASED
  7. LOVASTATIN. [Concomitant]
     Active Substance: LOVASTATIN
     Indication: CARDIOVASCULAR DISORDER
     Dosage: UNK
     Dates: start: 2013

REACTIONS (2)
  - Type 2 diabetes mellitus [Not Recovered/Not Resolved]
  - Emotional distress [Not Recovered/Not Resolved]

NARRATIVE: CASE EVENT DATE: 201501
